FAERS Safety Report 8261174-8 (Version None)
Quarter: 2012Q2

REPORT INFORMATION
  Report Type: 
  Country: None (occurrence: None)
  Receive Date: 20120405
  Receipt Date: 20120327
  Transmission Date: 20120825
  Serious: Yes (Hospitalization)
  Sender: FDA-Public Use
  Company Number: US-US-EMD SERONO, INC.-7122225

PATIENT
  Sex: Male

DRUGS (3)
  1. REBIF [Suspect]
     Indication: PRODUCT USED FOR UNKNOWN INDICATION
     Route: 058
     Dates: start: 20120227, end: 20120301
  2. ATROPINE [Suspect]
     Indication: HEART RATE DECREASED
     Dates: start: 20120301
  3. REBIF [Suspect]
     Route: 058
     Dates: start: 20120301

REACTIONS (5)
  - DEAFNESS UNILATERAL [None]
  - ATRIAL FIBRILLATION [None]
  - CENTRAL NERVOUS SYSTEM LESION [None]
  - INJECTION SITE URTICARIA [None]
  - HEART RATE DECREASED [None]
